FAERS Safety Report 5801597-7 (Version None)
Quarter: 2008Q2

REPORT INFORMATION
  Report Type: 
  Country: None (occurrence: None)
  Receive Date: 20080626
  Receipt Date: 20071129
  Transmission Date: 20081010
  Serious: Yes (Hospitalization)
  Sender: FDA-Public Use
  Company Number: 534263

PATIENT
  Age: 93 Year
  Sex: Male

DRUGS (4)
  1. XELODA [Suspect]
     Indication: COLON CANCER METASTATIC
     Dosage: 1000 MG 2 PER DAY
  2. PROTONIX [Concomitant]
  3. ZOLOFT [Concomitant]
  4. FLOMAX ('MORNIFLUMATE/'TAMSULOSIN HYDROCHLORIDE) [Concomitant]

REACTIONS (1)
  - RASH ERYTHEMATOUS [None]
